FAERS Safety Report 7579327-0 (Version None)
Quarter: 2011Q2

REPORT INFORMATION
  Report Type: 
  Country: None (occurrence: None)
  Receive Date: 20110628
  Receipt Date: 20110607
  Transmission Date: 20111010
  Serious: No
  Sender: FDA-Public Use
  Company Number: US-BAYER-2011-049646

PATIENT
  Age: 90 Year
  Sex: Female
  Weight: 48 kg

DRUGS (2)
  1. ALEVE (CAPLET) [Suspect]
     Dosage: 1 DF, QD
     Route: 048
  2. EFUDEX [Concomitant]

REACTIONS (2)
  - FOREIGN BODY [None]
  - THROAT IRRITATION [None]
